FAERS Safety Report 15036485 (Version 1)
Quarter: 2018Q2

REPORT INFORMATION
  Report Type: Spontaneous
  Country: US (occurrence: US)
  Receive Date: 20180530
  Receipt Date: 20180530
  Transmission Date: 20180711
  Serious: No
  Sender: FDA-Public Use
  Company Number: None

PATIENT
  Age: 25 Year
  Sex: Female

DRUGS (1)
  1. MAKENA [Suspect]
     Active Substance: HYDROXYPROGESTERONE CAPROATE
     Route: 058
     Dates: start: 20180418, end: 20180530

REACTIONS (5)
  - Injection site pain [None]
  - Gestational diabetes [None]
  - Injection site erythema [None]
  - Exposure during pregnancy [None]
  - Injection site warmth [None]

NARRATIVE: CASE EVENT DATE: 20180510
